FAERS Safety Report 8532793 (Version 7)
Quarter: 2014Q1

REPORT INFORMATION
  Report Type: Report from Study
  Country: BR (occurrence: BR)
  Receive Date: 20120426
  Receipt Date: 20140112
  Transmission Date: 20141002
  Serious: Yes (Life-Threatening, Hospitalization, Other)
  Sender: FDA-Public Use
  Company Number: BR-ROCHE-729125

PATIENT
  Age: 60 Year
  Sex: Female
  Weight: 71 kg

DRUGS (17)
  1. MABTHERA [Suspect]
     Indication: RHEUMATOID ARTHRITIS
     Dosage: FORM: INFUSION. DOSE: 500MG/50ML
     Route: 042
     Dates: start: 20100405, end: 20100420
  2. MABTHERA [Suspect]
     Route: 065
  3. MABTHERA [Suspect]
     Route: 065
  4. MABTHERA [Suspect]
     Route: 065
  5. MABTHERA [Suspect]
     Route: 065
  6. MABTHERA [Suspect]
     Route: 065
  7. CORTISONE [Suspect]
     Indication: HYPERSENSITIVITY
     Dosage: OTHER INDICATION: PRE-MEDICATION
     Route: 065
  8. INDAPEN [Concomitant]
  9. CITALOR [Concomitant]
  10. PURAN T4 [Concomitant]
     Indication: THYROID DISORDER
     Route: 065
  11. LIPITOR [Concomitant]
     Indication: BLOOD CHOLESTEROL ABNORMAL
     Route: 065
  12. ROHYPNOL [Concomitant]
     Indication: SLEEP DISORDER THERAPY
     Route: 065
  13. AMOXICILLIN [Concomitant]
  14. CHLOROQUINE [Concomitant]
     Indication: RHEUMATOID ARTHRITIS
  15. TRAMAL [Concomitant]
  16. OXYCODONE [Concomitant]
  17. LYRICA [Concomitant]

REACTIONS (25)
  - Laryngeal oedema [Recovered/Resolved]
  - Herpes zoster [Not Recovered/Not Resolved]
  - Therapeutic response decreased [Unknown]
  - Laryngeal oedema [Recovered/Resolved]
  - Hypersensitivity [Recovered/Resolved]
  - Foot deformity [Recovering/Resolving]
  - Limb discomfort [Unknown]
  - Arthralgia [Not Recovered/Not Resolved]
  - Blood cholesterol increased [Recovered/Resolved]
  - Local swelling [Not Recovered/Not Resolved]
  - Infusion related reaction [Recovered/Resolved]
  - Nausea [Not Recovered/Not Resolved]
  - Hypertension [Unknown]
  - Dyspnoea [Recovered/Resolved]
  - Weight increased [Recovering/Resolving]
  - Weight loss poor [Not Recovered/Not Resolved]
  - Joint effusion [Recovering/Resolving]
  - Somnolence [Recovered/Resolved]
  - Blood cholesterol abnormal [Not Recovered/Not Resolved]
  - Nasopharyngitis [Unknown]
  - Malaise [Unknown]
  - Oropharyngeal pain [Unknown]
  - Swelling [Recovered/Resolved]
  - Blood iron decreased [Not Recovered/Not Resolved]
  - Cough [Not Recovered/Not Resolved]
